FAERS Safety Report 6753299-0 (Version None)
Quarter: 2010Q2

REPORT INFORMATION
  Report Type: 
  Country: None (occurrence: None)
  Receive Date: 20100603
  Receipt Date: 20100520
  Transmission Date: 20101027
  Serious: Yes (Hospitalization)
  Sender: FDA-Public Use
  Company Number: CH-ELI_LILLY_AND_COMPANY-CH201005005386

PATIENT
  Age: 74 Year
  Sex: Female
  Weight: 53 kg

DRUGS (10)
  1. EFFIENT [Suspect]
     Indication: MYOCARDIAL INFARCTION
     Dosage: 10 MG, DAILY (1/D)
     Route: 048
     Dates: start: 20091101
  2. EFFIENT [Suspect]
     Dosage: 5 MG, DAILY (1/D)
     Route: 065
  3. ASPIRIN [Concomitant]
     Indication: MYOCARDIAL INFARCTION
     Dosage: 100 MG, DAILY (1/D)
     Route: 048
     Dates: start: 20091101
  4. LISITRIL [Concomitant]
     Dosage: 10 MG, DAILY (1/D)
     Route: 048
  5. SPIRONOLACTONE [Concomitant]
     Dosage: 25 MG, DAILY (1/D)
     Route: 048
  6. METOPROLOL [Concomitant]
     Dosage: 100 MG, DAILY (1/D)
     Route: 048
  7. TORASEMIDE [Concomitant]
     Dosage: 2.5 MG, DAILY (1/D)
     Route: 048
  8. CALCIMAGON-D 3 [Concomitant]
     Dosage: 500 MG, 2/D
     Route: 048
  9. LORAZEPAM [Concomitant]
     Dosage: 1 MG, DAILY (1/D)
     Route: 048
  10. ATORVASTATIN [Concomitant]
     Dosage: 80 MG, DAILY (1/D)
     Route: 048

REACTIONS (2)
  - ASTHENIA [None]
  - HYPOCHROMIC ANAEMIA [None]
